FAERS Safety Report 7055239-6 (Version None)
Quarter: 2010Q4

REPORT INFORMATION
  Report Type: 
  Country: None (occurrence: None)
  Receive Date: 20101021
  Receipt Date: 20101014
  Transmission Date: 20110411
  Serious: Yes (Other)
  Sender: FDA-Public Use
  Company Number: PHHY2010BR23324

PATIENT
  Age: 21 Year
  Sex: Female
  Weight: 95 kg

DRUGS (3)
  1. TRILEPTAL [Suspect]
     Indication: SYNCOPE
     Dosage: 1 DF, BID (MORNING AND NIGHT)
     Route: 048
     Dates: start: 20080101
  2. TRILEPTAL [Suspect]
     Dosage: 1 DF, QD
     Route: 048
  3. MICRONOR [Concomitant]
     Dosage: UNK

REACTIONS (3)
  - CAESAREAN SECTION [None]
  - DRUG EXPOSURE DURING PREGNANCY [None]
  - SOMNOLENCE [None]
